FAERS Safety Report 7410201-6 (Version None)
Quarter: 2011Q2

REPORT INFORMATION
  Report Type: 
  Country: None (occurrence: None)
  Receive Date: 20110412
  Receipt Date: 20110404
  Transmission Date: 20111010
  Serious: Yes (Hospitalization)
  Sender: FDA-Public Use
  Company Number: CH-JNJFOC-20101002227

PATIENT
  Age: 50 Year
  Sex: Female
  Weight: 70 kg

DRUGS (6)
  1. ACIDUM FOLICUM [Concomitant]
     Indication: PROPHYLAXIS
     Route: 048
  2. SPIRICORT [Concomitant]
     Indication: RHEUMATOID ARTHRITIS
     Route: 048
  3. IBRUPROFEN [Concomitant]
     Indication: RHEUMATOID ARTHRITIS
     Route: 048
  4. CALCIMAGON [Concomitant]
     Indication: PROPHYLAXIS
     Route: 048
  5. GOLIMUMAB [Suspect]
     Indication: RHEUMATOID ARTHRITIS
     Route: 058
  6. METHOTREXAT [Concomitant]
     Indication: RHEUMATOID ARTHRITIS
     Route: 048

REACTIONS (1)
  - HAEMOPTYSIS [None]
